FAERS Safety Report 7311488-0 (Version None)
Quarter: 2011Q1

REPORT INFORMATION
  Report Type: 
  Country: None (occurrence: None)
  Receive Date: 20110224
  Receipt Date: 20110211
  Transmission Date: 20110831
  Serious: Yes (Hospitalization)
  Sender: FDA-Public Use
  Company Number: PHHO2011DE02336

PATIENT
  Sex: Female
  Weight: 60 kg

DRUGS (5)
  1. VOLTAREN [Suspect]
     Indication: PAIN
     Dosage: UNK
     Dates: start: 20110201
  2. SOM230 [Suspect]
     Indication: NEUROENDOCRINE TUMOUR
     Dosage: 60 MG, UNK
     Route: 030
     Dates: start: 20100615, end: 20110201
  3. HYDROCORTISON [Suspect]
  4. ZOLEDRONATE [Concomitant]
     Indication: METASTASES TO BONE
     Dosage: UNK
  5. ASTONIN-H [Concomitant]

REACTIONS (11)
  - HYPONATRAEMIA [None]
  - NAUSEA [None]
  - HYPERTENSION [None]
  - THROMBOCYTOPENIA [None]
  - EPISTAXIS [None]
  - VOMITING [None]
  - HAEMATEMESIS [None]
  - HEADACHE [None]
  - DISTURBANCE IN ATTENTION [None]
  - NEOPLASM MALIGNANT [None]
  - ANAEMIA [None]
